FAERS Safety Report 9893402 (Version 1)
Quarter: 2014Q1

REPORT INFORMATION
  Report Type: Spontaneous
  Country: US (occurrence: US)
  Receive Date: 20140213
  Receipt Date: 20140213
  Transmission Date: 20141002
  Serious: No
  Sender: FDA-Public Use
  Company Number: US-BAYER-2014-019796

PATIENT
  Age: 18 Year
  Sex: Female

DRUGS (2)
  1. GIANVI [Suspect]
     Indication: MENSTRUAL CYCLE MANAGEMENT
     Dosage: UNK
     Route: 048
     Dates: start: 201210, end: 201305
  2. GIANVI [Suspect]
     Indication: CONTRACEPTION

REACTIONS (5)
  - Mood swings [Recovered/Resolved]
  - Weight increased [Recovered/Resolved]
  - Acne [Recovered/Resolved]
  - Alopecia [Recovered/Resolved]
  - Headache [Recovered/Resolved]
